FAERS Safety Report 7023112-5 (Version None)
Quarter: 2010Q3

REPORT INFORMATION
  Report Type: 
  Country: None (occurrence: None)
  Receive Date: 20100930
  Receipt Date: 20100921
  Transmission Date: 20110219
  Serious: Yes (Other)
  Sender: FDA-Public Use
  Company Number: PHHY2010BR62672

PATIENT
  Sex: Female

DRUGS (2)
  1. DIOVAN HCT [Suspect]
  2. SINERGEN [Concomitant]

REACTIONS (1)
  - BLOOD PRESSURE INCREASED [None]
